FAERS Safety Report 4363692-1 (Version None)
Quarter: 2004Q2

REPORT INFORMATION
  Report Type: 
  Country: None (occurrence: None)
  Receive Date: 20040521
  Receipt Date: 20040521
  Transmission Date: 20050107
  Serious: No
  Sender: FDA-Public Use
  Company Number: None

PATIENT
  Age: 49 Year
  Sex: Male
  Weight: 90.7194 kg

DRUGS (1)
  1. OXAPROZIN [Suspect]
     Indication: PAIN
     Dosage: TWICE A DAY

REACTIONS (3)
  - BURNING SENSATION [None]
  - FEELING ABNORMAL [None]
  - PALPITATIONS [None]
